FAERS Safety Report 7877335-3 (Version None)
Quarter: 2011Q4

REPORT INFORMATION
  Report Type: 
  Country: None (occurrence: None)
  Receive Date: 20111031
  Receipt Date: 20111020
  Transmission Date: 20120403
  Serious: Yes (Death, Other)
  Sender: FDA-Public Use
  Company Number: IT-BRISTOL-MYERS SQUIBB COMPANY-16174310

PATIENT
  Age: 88 Year
  Sex: Female

DRUGS (7)
  1. ENALAPRIL [Concomitant]
     Dates: start: 20110930, end: 20111008
  2. COUMADIN [Suspect]
     Indication: PULMONARY EMBOLISM
     Dosage: INTERU ON 7OCT11
     Dates: start: 20111003
  3. CEFTRIAXONE [Concomitant]
     Dates: start: 20110930, end: 20111008
  4. MERREM [Concomitant]
     Dosage: 1000MG POWDER FOR INJECTABLE SOLUTION
     Route: 042
  5. ENOXAPARIN SODIUM [Suspect]
     Indication: PULMONARY EMBOLISM
     Dosage: T 6000IU INJECTABLE SOLUTION INTERRUPTED ON 08OCT2011
     Route: 058
     Dates: start: 20110930
  6. PANTOPRAZOLE [Concomitant]
     Dates: start: 20111001, end: 20111011
  7. CLARITROMICINA [Concomitant]
     Route: 042

REACTIONS (4)
  - RETROPERITONEAL HAEMATOMA [None]
  - SHOCK HAEMORRHAGIC [None]
  - INTERNATIONAL NORMALISED RATIO INCREASED [None]
  - PLEURAL EFFUSION [None]
